FAERS Safety Report 9508988 (Version 1)
Quarter: 2013Q3

REPORT INFORMATION
  Report Type: Spontaneous
  Country: SE (occurrence: SE)
  Receive Date: 20130909
  Receipt Date: 20130909
  Transmission Date: 20140515
  Serious: Yes (Other)
  Sender: FDA-Public Use
  Company Number: SE-ASTRAZENECA-2013SE67008

PATIENT
  Sex: Female

DRUGS (1)
  1. MARCAIN [Suspect]
     Dosage: 5MG/ML
     Route: 037

REACTIONS (1)
  - Drug effect increased [Unknown]
